FAERS Safety Report 4308849-0 (Version None)
Quarter: 2004Q1

REPORT INFORMATION
  Report Type: 
  Country: None (occurrence: None)
  Receive Date: 20040301
  Receipt Date: 20040301
  Transmission Date: 20041129
  Serious: Yes (Hospitalization)
  Sender: FDA-Public Use
  Company Number: None

PATIENT
  Age: 51 Year
  Sex: Male
  Weight: 71.6 kg

DRUGS (7)
  1. HALDOL [Suspect]
     Indication: MENTAL DISORDER
     Dosage: 5 MG PO BID [CHRONIC]
     Route: 048
  2. SEROQUEL [Suspect]
     Indication: MENTAL DISORDER
     Dosage: 200 MG @ NOON , 600 MG QHS CHRONIC
  3. HALDOL DCANOATE [Concomitant]
  4. PROTONIX [Concomitant]
  5. MULTI-VITAMIN [Concomitant]
  6. FLUNISOLIDE [Concomitant]
  7. NORVASC [Concomitant]

REACTIONS (5)
  - ASTHENIA [None]
  - ATAXIA [None]
  - DRUG TOXICITY [None]
  - FALL [None]
  - METABOLIC DISORDER [None]
